FAERS Safety Report 16776144 (Version 1)
Quarter: 2019Q3

REPORT INFORMATION
  Report Type: Spontaneous
  Country: US (occurrence: US)
  Receive Date: 20190716
  Receipt Date: 20190716
  Transmission Date: 20191005
  Serious: Yes (Other)
  Sender: FDA-Public Use
  Company Number: None

PATIENT
  Age: 45 Year
  Sex: Female
  Weight: 74.84 kg

DRUGS (5)
  1. SODIUM CHLORIDE HYPERTONICITY [Suspect]
     Active Substance: SODIUM CHLORIDE
     Indication: DRY EYE
     Dosage: ?          QUANTITY:5%, 0.125OZ,3.5GM;?
     Route: 047
     Dates: start: 20190126, end: 20190701
  2. MIRENA [Concomitant]
     Active Substance: LEVONORGESTREL
  3. RESTASIS [Concomitant]
     Active Substance: CYCLOSPORINE
  4. ADVIL [Concomitant]
     Active Substance: IBUPROFEN
  5. IBUPROFEN. [Concomitant]
     Active Substance: IBUPROFEN

REACTIONS (4)
  - Lacrimation increased [None]
  - Eye pain [None]
  - Recalled product administered [None]
  - Eye irritation [None]

NARRATIVE: CASE EVENT DATE: 20190626
